FAERS Safety Report 24331675 (Version 1)
Quarter: 2024Q3

REPORT INFORMATION
  Report Type: Spontaneous
  Country: US (occurrence: US)
  Receive Date: 20240918
  Receipt Date: 20240918
  Transmission Date: 20241017
  Serious: No
  Sender: HELSINN HEALTHCARE
  Company Number: US-HBP-2024US031218

PATIENT
  Sex: Male

DRUGS (1)
  1. VALCHLOR [Suspect]
     Active Substance: MECHLORETHAMINE
     Indication: Cutaneous T-cell lymphoma
     Dosage: UNK, TO AFFTECTED AREAS EVERY OTHER DAY AT BEDTIME
     Route: 061

REACTIONS (2)
  - Peripheral swelling [Unknown]
  - Off label use [Unknown]
